FAERS Safety Report 14625709 (Version 1)
Quarter: 2018Q1

REPORT INFORMATION
  Report Type: Spontaneous
  Country: US (occurrence: US)
  Receive Date: 20180312
  Receipt Date: 20180312
  Transmission Date: 20180509
  Serious: Yes (Hospitalization)
  Sender: FDA-Public Use
  Company Number: US-PFIZER INC-2016476356

PATIENT
  Age: 81 Year
  Sex: Female
  Weight: 56.7 kg

DRUGS (14)
  1. REVATIO [Suspect]
     Active Substance: SILDENAFIL CITRATE
     Indication: PULMONARY HYPERTENSION
     Dosage: 20 MG, 2X/DAY
     Dates: start: 1998
  2. POTASSIUM [Concomitant]
     Active Substance: POTASSIUM
     Dosage: 20 MG, 2X/DAY
  3. SPIRONOLACTONE. [Concomitant]
     Active Substance: SPIRONOLACTONE
     Dosage: 25 MG, ALTERNATE DAY
  4. FUROSEMIDE. [Concomitant]
     Active Substance: FUROSEMIDE
     Dosage: UNK UNK, DAILY (2 IN THE MORNING, 2 IN THE EVENING AND HALF A PILL IF NEEDED IN THE MIDDLE OF DAY)
  5. PANTOPRAZOLE [Concomitant]
     Active Substance: PANTOPRAZOLE
     Dosage: 40 MG, DAILY (ONE EVERY MORNING)
  6. TIMOLOL. [Concomitant]
     Active Substance: TIMOLOL
     Dosage: 2 GTT, 2X/DAY (1 DROP IN EACH EYE, TWICE A DAY)
  7. PRESERVISION AREDS 2 [Concomitant]
     Active Substance: MINERALS\VITAMINS
     Dosage: UNK UNK, 1X/DAY
  8. LEVOTHYROXINE. [Concomitant]
     Active Substance: LEVOTHYROXINE
     Dosage: ^88 MG^, 1X/DAY
  9. REVATIO [Suspect]
     Active Substance: SILDENAFIL CITRATE
     Dosage: 50 MG, DAILY (20 MG TWICE DAILY AND (TAKE AN ADDITIONAL) HALF TABLET IN THE EVENING)
     Route: 048
  10. CARVEDILOL. [Concomitant]
     Active Substance: CARVEDILOL
     Dosage: 12 MG, 2X/DAY
  11. DIGOXIN. [Concomitant]
     Active Substance: DIGOXIN
     Dosage: 0.125 MG, DAILY (EVERY MORNING)
  12. XALATAN [Concomitant]
     Active Substance: LATANOPROST
     Dosage: 2 GTT, 1X/DAY (ONE DROP IN EACH EYE, ONCE A DAY AT BEDTIME)
  13. COLCRYS [Concomitant]
     Active Substance: COLCHICINE
     Dosage: 6 MG, AS NEEDED (EVERY MORNING)
  14. FERROUS SULFATE. [Concomitant]
     Active Substance: FERROUS SULFATE
     Dosage: 325 MG, ONE TABLET DAILY

REACTIONS (4)
  - Anaemia [Recovering/Resolving]
  - Intentional product misuse [Unknown]
  - Product use issue [Unknown]
  - Expired product administered [Unknown]

NARRATIVE: CASE EVENT DATE: 201801
